FAERS Safety Report 11836748 (Version 1)
Quarter: 2015Q4

REPORT INFORMATION
  Report Type: Report from Study
  Country: CA (occurrence: CA)
  Receive Date: 20151215
  Receipt Date: 20151215
  Transmission Date: 20160305
  Serious: Yes (Hospitalization, Other)
  Sender: FDA-Public Use
  Company Number: CA-ABBVIE-15K-028-1516092-00

PATIENT
  Sex: Male
  Weight: 111.23 kg

DRUGS (2)
  1. HUMIRA [Suspect]
     Active Substance: ADALIMUMAB
     Route: 058
     Dates: start: 2015
  2. HUMIRA [Suspect]
     Active Substance: ADALIMUMAB
     Indication: CROHN^S DISEASE
     Route: 058
     Dates: start: 20150331, end: 20151103

REACTIONS (9)
  - Erythema [Not Recovered/Not Resolved]
  - Abscess [Unknown]
  - Abdominal hernia [Not Recovered/Not Resolved]
  - Intestinal dilatation [Unknown]
  - Device damage [Unknown]
  - Tremor [Unknown]
  - Infection [Unknown]
  - Pyrexia [Unknown]
  - Gastrointestinal pain [Not Recovered/Not Resolved]

NARRATIVE: CASE EVENT DATE: 2015
